FAERS Safety Report 19780250 (Version 1)
Quarter: 2021Q3

REPORT INFORMATION
  Report Type: Spontaneous
  Country: US (occurrence: US)
  Receive Date: 20210902
  Receipt Date: 20210902
  Transmission Date: 20211014
  Serious: No
  Sender: FDA-Public Use
  Company Number: US-ELI_LILLY_AND_COMPANY-US202108012525

PATIENT
  Sex: Female

DRUGS (1)
  1. TRULICITY [Suspect]
     Active Substance: DULAGLUTIDE
     Indication: PRODUCT USED FOR UNKNOWN INDICATION
     Dosage: 0.75 MG, UNKNOWN
     Route: 058
     Dates: start: 2019

REACTIONS (7)
  - Fatigue [Unknown]
  - Hyperphagia [Unknown]
  - Off label use [Unknown]
  - Hypersomnia [Unknown]
  - Food craving [Unknown]
  - Weight increased [Unknown]
  - Vision blurred [Unknown]
